FAERS Safety Report 8440956 (Version 3)
Quarter: 2014Q2

REPORT INFORMATION
  Report Type: Report from Study
  Country: US (occurrence: US)
  Receive Date: 20120305
  Receipt Date: 20140627
  Transmission Date: 20141212
  Serious: Yes (Hospitalization)
  Sender: FDA-Public Use
  Company Number: US-ACTELION-A-US2012-61832

PATIENT
  Age: 75 Year
  Sex: Female

DRUGS (3)
  1. TRACLEER [Suspect]
     Indication: PULMONARY ARTERIAL HYPERTENSION
     Dosage: UNK
     Route: 048
     Dates: start: 20090226
  2. PERCOCET [Suspect]
     Dosage: 62.5 MG, BID
     Dates: start: 2009
  3. PERCOCET [Suspect]
     Dosage: 125 MG, BID
     Route: 048
     Dates: start: 2009, end: 2009

REACTIONS (9)
  - Fall [Recovered/Resolved]
  - Traumatic lung injury [Unknown]
  - Joint injury [Unknown]
  - Wrist fracture [Not Recovered/Not Resolved]
  - Rotator cuff syndrome [Recovering/Resolving]
  - Concomitant disease aggravated [Recovering/Resolving]
  - Haemothorax [Recovered/Resolved]
  - Malaise [Recovered/Resolved]
  - Nausea [Recovered/Resolved]
